FAERS Safety Report 9744367 (Version 2)
Quarter: 2013Q4

REPORT INFORMATION
  Report Type: Spontaneous
  Country: US (occurrence: US)
  Receive Date: 20131210
  Receipt Date: 20131220
  Transmission Date: 20140711
  Serious: No
  Sender: FDA-Public Use
  Company Number: US-GILEAD-2013-0089388

PATIENT
  Sex: Female

DRUGS (3)
  1. LETAIRIS [Suspect]
     Indication: PRODUCT USED FOR UNKNOWN INDICATION
     Dosage: 5 MG, QD
     Route: 065
     Dates: start: 20131007
  2. TYVASO [Concomitant]
  3. REVATIO [Concomitant]

REACTIONS (7)
  - Cough [Not Recovered/Not Resolved]
  - Dysphonia [Unknown]
  - Pyrexia [Unknown]
  - Fatigue [Unknown]
  - Nasal congestion [Unknown]
  - Nasopharyngitis [Unknown]
  - Headache [Recovered/Resolved]
